FAERS Safety Report 12215770 (Version 4)
Quarter: 2016Q2

REPORT INFORMATION
  Report Type: Report from Study
  Country: BE (occurrence: BE)
  Receive Date: 20160328
  Receipt Date: 20160527
  Transmission Date: 20160815
  Serious: Yes (Hospitalization)
  Sender: FDA-Public Use
  Company Number: BE-ABBVIE-15P-013-1418075-00

PATIENT
  Sex: Male

DRUGS (14)
  1. DUODOPA [Suspect]
     Active Substance: CARBIDOPA\LEVODOPA
     Dosage: AM=2ML; CD=2ML/HR DURING 16HRS;ED=1.8ML; ND=2ML/HR DURING 8 HRS
     Route: 050
     Dates: start: 20160125, end: 20160222
  2. DUODOPA [Suspect]
     Active Substance: CARBIDOPA\LEVODOPA
     Dosage: AM=2.5ML; CD=2.2ML/HR DURING 16HRS; ED=1.8ML
     Route: 050
     Dates: start: 20160222, end: 20160302
  3. SINTROM [Concomitant]
     Active Substance: ACENOCOUMAROL
  4. BURINEX [Concomitant]
     Active Substance: BUMETANIDE
     Indication: PRODUCT USED FOR UNKNOWN INDICATION
  5. AMANTADIN [Concomitant]
     Active Substance: AMANTADINE
     Indication: PRODUCT USED FOR UNKNOWN INDICATION
  6. DUODOPA [Suspect]
     Active Substance: CARBIDOPA\LEVODOPA
     Indication: PARKINSON^S DISEASE
     Route: 050
     Dates: start: 20110221, end: 20110225
  7. DUODOPA [Suspect]
     Active Substance: CARBIDOPA\LEVODOPA
     Dosage: AM=2.5ML;CD= 2.8ML/HR DURING 16HRS;ED=1.8ML
     Route: 050
     Dates: start: 20160523
  8. DUODOPA [Suspect]
     Active Substance: CARBIDOPA\LEVODOPA
     Dosage: AM DOSE=7ML, CD=4.4ML/H FOR 16HRS AND ED=3ML
     Route: 050
     Dates: start: 20110225, end: 20110311
  9. DUODOPA [Suspect]
     Active Substance: CARBIDOPA\LEVODOPA
     Dosage: DOSAGE CONTINOUSLY MONITORED AND ADJUSTED
     Route: 050
     Dates: start: 20110311, end: 20141009
  10. PRAVASTATIN [Concomitant]
     Active Substance: PRAVASTATIN\PRAVASTATIN SODIUM
     Indication: PRODUCT USED FOR UNKNOWN INDICATION
  11. DUODOPA [Suspect]
     Active Substance: CARBIDOPA\LEVODOPA
     Dosage: AM 3 ML, CD 2.2ML/H FOR 16HRS, ED 2 ML
     Route: 050
     Dates: start: 20151006, end: 20160125
  12. DUODOPA [Suspect]
     Active Substance: CARBIDOPA\LEVODOPA
     Dosage: AM 2ML, CD2.8ML/H FOR 16HRS AND ED2.3ML
     Route: 050
     Dates: start: 20141009, end: 20151006
  13. SINTROM [Concomitant]
     Active Substance: ACENOCOUMAROL
     Indication: PRODUCT USED FOR UNKNOWN INDICATION
  14. DUODOPA [Suspect]
     Active Substance: CARBIDOPA\LEVODOPA
     Dosage: AM: 2.5 ML; CD: 2.4 ML/H DURING 16 HRS; ED: 1.8 ML
     Route: 050
     Dates: start: 20160302, end: 20160523

REACTIONS (8)
  - General physical health deterioration [Not Recovered/Not Resolved]
  - Dystonia [Not Recovered/Not Resolved]
  - Tremor [Recovered/Resolved]
  - Mental impairment [Not Recovered/Not Resolved]
  - Dyskinesia [Not Recovered/Not Resolved]
  - Arthritis [Unknown]
  - Freezing phenomenon [Not Recovered/Not Resolved]
  - Abasia [Unknown]
